FAERS Safety Report 10302753 (Version 1)
Quarter: 2014Q3

REPORT INFORMATION
  Report Type: Spontaneous
  Country: GB (occurrence: None)
  Receive Date: 20140708
  Receipt Date: 20140708
  Transmission Date: 20150326
  Serious: Yes (Hospitalization, Disabling)
  Sender: FDA-Public Use
  Company Number: AUR-APL-2014-06211

PATIENT
  Age: 73 Year
  Sex: Female
  Weight: 70 kg

DRUGS (5)
  1. RISPERIDONE. [Suspect]
     Active Substance: RISPERIDONE
     Indication: AGGRESSION
     Route: 048
     Dates: start: 201307
  2. BUTRANS [Suspect]
     Active Substance: BUPRENORPHINE
     Indication: BACK PAIN
     Route: 062
     Dates: start: 20140508, end: 20140518
  3. PARACETAMOL (PARACETAMOL) [Concomitant]
     Active Substance: ACETAMINOPHEN
  4. PREGABALIN (PREGABALIN) [Concomitant]
     Active Substance: PREGABALIN
  5. LORAZEPAM (LORAZEPAM) [Concomitant]
     Active Substance: LORAZEPAM

REACTIONS (4)
  - Delirium [None]
  - Parkinsonism [None]
  - Tremor [None]
  - Intention tremor [None]

NARRATIVE: CASE EVENT DATE: 20140515
